FAERS Safety Report 10513328 (Version 1)
Quarter: 2014Q4

REPORT INFORMATION
  Report Type: Spontaneous
  Country: US (occurrence: US)
  Receive Date: 20141013
  Receipt Date: 20141013
  Transmission Date: 20150528
  Serious: Yes (Other)
  Sender: FDA-Public Use
  Company Number: US-JNJFOC-20140926937

PATIENT

DRUGS (5)
  1. ALCAR [Suspect]
     Active Substance: ACETYLCARNITINE
     Indication: PLASMA CELL MYELOMA
     Dosage: ON DAY 1,4,8,11 UPTO 8 CYCLES
     Route: 048
  2. DOXORUBICIN [Suspect]
     Active Substance: DOXORUBICIN
     Indication: PLASMA CELL MYELOMA
     Dosage: ON DAY 1,8
     Route: 042
  3. DEXAMETHASONE. [Suspect]
     Active Substance: DEXAMETHASONE
     Indication: PLASMA CELL MYELOMA
     Dosage: ON DAY 1,4,8,11 UPTO 8 CYCLES
     Route: 048
  4. ACYCLOVIR. [Concomitant]
     Active Substance: ACYCLOVIR
     Indication: VARICELLA
     Route: 065
  5. BORTEZOMIB [Suspect]
     Active Substance: BORTEZOMIB
     Indication: PLASMA CELL MYELOMA
     Dosage: ON DAY 1,4,8,11
     Route: 042

REACTIONS (12)
  - Peripheral sensory neuropathy [Unknown]
  - Fatigue [Unknown]
  - Thrombocytopenia [Unknown]
  - Neurotoxicity [Unknown]
  - Neutropenia [Unknown]
  - Pain [Unknown]
  - Diarrhoea [Unknown]
  - Nausea [Unknown]
  - Neuropathy peripheral [Unknown]
  - Infection [Unknown]
  - Haemoglobin decreased [Unknown]
  - Lymphopenia [Unknown]
